FAERS Safety Report 25185616 (Version 2)
Quarter: 2025Q4

REPORT INFORMATION
  Report Type: Spontaneous
  Country: US (occurrence: US)
  Receive Date: 20250410
  Receipt Date: 20251022
  Transmission Date: 20260118
  Serious: No
  Sender: SANOFI AVENTIS
  Company Number: US-SA-2025SA102191

PATIENT
  Age: 61 Year
  Sex: Female

DRUGS (3)
  1. DUPIXENT [Suspect]
     Active Substance: DUPILUMAB
     Indication: Dermatitis
     Dosage: 200 MG, QOW
     Route: 058
  2. DUPIXENT [Suspect]
     Active Substance: DUPILUMAB
     Dosage: 300 MG, QOW
     Route: 058
  3. CEFDINIR [Concomitant]
     Active Substance: CEFDINIR
     Dosage: UNK

REACTIONS (2)
  - Weight increased [Recovered/Resolved]
  - Product use in unapproved indication [Unknown]
